FAERS Safety Report 22776775 (Version 3)
Quarter: 2024Q1

REPORT INFORMATION
  Report Type: Report from Study
  Country: CO (occurrence: CO)
  Receive Date: 20230802
  Receipt Date: 20240123
  Transmission Date: 20240410
  Serious: Yes (Other)
  Sender: FDA-Public Use
  Company Number: CO-002147023-NVSC2023CO168410

PATIENT
  Sex: Male

DRUGS (1)
  1. COSENTYX [Suspect]
     Active Substance: SECUKINUMAB
     Indication: Ankylosing spondylitis
     Dosage: 150 MG, QMO
     Route: 058
     Dates: start: 20231223

REACTIONS (5)
  - Mobility decreased [Unknown]
  - Pain [Unknown]
  - Rotator cuff syndrome [Unknown]
  - Spinal disorder [Unknown]
  - Drug ineffective [Unknown]
